FAERS Safety Report 10176869 (Version 2)
Quarter: 2014Q2

REPORT INFORMATION
  Report Type: Spontaneous
  Country: US (occurrence: US)
  Receive Date: 20140516
  Receipt Date: 20140602
  Transmission Date: 20141212
  Serious: No
  Sender: FDA-Public Use
  Company Number: US-SHIRE-US201402249

PATIENT
  Age: 69 Year
  Sex: Male
  Weight: 70.3 kg

DRUGS (9)
  1. LIALDA [Suspect]
     Indication: COLITIS
     Dosage: 4.8 G (FOUR 1.2G TABLETS), 1X/DAY:QD
     Route: 048
     Dates: start: 20140409, end: 20140419
  2. BABY ASPIRIN [Concomitant]
     Indication: CARDIAC DISORDER
     Dosage: 81 MG, 1X/DAY:QD
     Route: 048
  3. LISINOPRIL [Concomitant]
     Indication: BLOOD PRESSURE ABNORMAL
     Dosage: 10 MG, 1X/DAY:QD (IN AM)
     Route: 048
  4. METOPROLOL [Concomitant]
     Indication: BLOOD PRESSURE ABNORMAL
     Dosage: 12.5 MG (HALF OF A 25MG TABLET), 1X/DAY:QD (AT NIGHT)
     Route: 048
  5. PRILOSEC                           /00661201/ [Concomitant]
     Indication: GASTROOESOPHAGEAL REFLUX DISEASE
     Dosage: 10.3 MG (HALF OF A 20.6 MG TABLET) , 1X/DAY:QD
     Route: 048
     Dates: start: 2004
  6. ALLOPURINOL [Concomitant]
     Indication: GOUT
     Dosage: 100 MG, 1X/DAY:QD
     Route: 048
     Dates: start: 2009
  7. COLCRYS [Concomitant]
     Indication: GOUT
     Dosage: 0.6 MG, AS REQ^D (AS NEEDED)
     Route: 048
     Dates: start: 2009
  8. CLOPIDOGREL [Concomitant]
     Indication: CARDIAC DISORDER
     Dosage: 75 MG, 1X/DAY:QD
     Route: 048
     Dates: start: 2013
  9. CENTRUM SILVER                     /02363801/ [Concomitant]
     Indication: ANAEMIA
     Dosage: 1 DF, 1X/DAY:QD
     Route: 048
     Dates: start: 2014

REACTIONS (5)
  - Sleep disorder [Recovering/Resolving]
  - Flatulence [Recovering/Resolving]
  - Condition aggravated [Recovering/Resolving]
  - Diarrhoea [Recovered/Resolved]
  - Abdominal pain upper [Recovering/Resolving]
